FAERS Safety Report 14254212 (Version 1)
Quarter: 2017Q4

REPORT INFORMATION
  Report Type: Spontaneous
  Country: GB (occurrence: GB)
  Receive Date: 20171206
  Receipt Date: 20171206
  Transmission Date: 20180321
  Serious: Yes (Hospitalization)
  Sender: FDA-Public Use
  Company Number: GB-CONCORDIA PHARMACEUTICALS INC.-E2B_00008596

PATIENT
  Age: 97 Year
  Sex: Female

DRUGS (4)
  1. LISINOPRIL. [Concomitant]
     Active Substance: LISINOPRIL
  2. FUROSEMIDE. [Concomitant]
     Active Substance: FUROSEMIDE
  3. LERCANIDIPINE [Concomitant]
     Active Substance: LERCANIDIPINE
  4. DIGOXIN. [Suspect]
     Active Substance: DIGOXIN
     Route: 048
     Dates: end: 20171030

REACTIONS (1)
  - Bradycardia [Recovering/Resolving]
